FAERS Safety Report 21205812 (Version 1)
Quarter: 2022Q3

REPORT INFORMATION
  Report Type: Spontaneous
  Country: FR (occurrence: FR)
  Receive Date: 20220812
  Receipt Date: 20220812
  Transmission Date: 20221026
  Serious: Yes (Hospitalization)
  Sender: FDA-Public Use
  Company Number: None

PATIENT
  Age: 86 Year
  Sex: Male

DRUGS (3)
  1. AMIODARONE [Interacting]
     Active Substance: AMIODARONE
     Indication: Product used for unknown indication
     Dosage: 5 DAYS A WEEK , UNIT DOSE : 200 MG , THERAPY START DATE :NASK
     Dates: end: 202203
  2. IMBRUVICA [Suspect]
     Active Substance: IBRUTINIB
     Indication: Chronic lymphocytic leukaemia
     Dosage: UNIT DOSE : 280 MG , DURATION : 3 YEARS
     Dates: start: 201811, end: 202206
  3. ELIQUIS [Concomitant]
     Active Substance: APIXABAN
     Indication: Atrial fibrillation
     Dates: start: 201907

REACTIONS (4)
  - Detachment of retinal pigment epithelium [Not Recovered/Not Resolved]
  - Retinal vascular occlusion [Not Recovered/Not Resolved]
  - Arteriosclerotic retinopathy [Not Recovered/Not Resolved]
  - Drug interaction [Unknown]

NARRATIVE: CASE EVENT DATE: 20220301
